FAERS Safety Report 6778855-5 (Version None)
Quarter: 2010Q2

REPORT INFORMATION
  Report Type: 
  Country: None (occurrence: None)
  Receive Date: 20100618
  Receipt Date: 20100608
  Transmission Date: 20101027
  Serious: No
  Sender: FDA-Public Use
  Company Number: US-JNJFOC-20100603022

PATIENT
  Sex: Female
  Weight: 81.65 kg

DRUGS (13)
  1. SANDOZ FENTANYL TRANSDERMAL SYSTEM [Suspect]
     Indication: BACK PAIN
     Route: 062
  2. TRAMADOL [Concomitant]
     Indication: BREAKTHROUGH PAIN
     Dosage: AS NEEDED
  3. LISINOPRIL [Concomitant]
     Indication: HYPERTENSION
     Route: 048
  4. PROZAC [Concomitant]
     Indication: ANTIDEPRESSANT THERAPY
     Route: 048
  5. TRICOR [Concomitant]
     Indication: BLOOD TRIGLYCERIDES INCREASED
     Route: 048
  6. FLUTICASONE [Concomitant]
     Route: 055
  7. LORAZEPAM [Concomitant]
     Indication: PANIC ATTACK
     Dosage: AS NEEDED
     Route: 048
  8. LUMIGAN [Concomitant]
     Indication: GLAUCOMA
     Route: 039
  9. IMITREX [Concomitant]
     Indication: HEADACHE
     Dosage: AS NEEDED
     Route: 048
  10. METFORMIN HCL [Concomitant]
     Indication: DIABETES MELLITUS
     Route: 048
  11. SOMA [Concomitant]
     Route: 048
  12. PROAIR HFA [Concomitant]
     Indication: RESPIRATORY DISORDER
  13. NAPROXEN [Concomitant]
     Indication: HEADACHE
     Dosage: AS NEEDED
     Route: 048

REACTIONS (3)
  - PRODUCT ADHESION ISSUE [None]
  - TREATMENT NONCOMPLIANCE [None]
  - WRONG TECHNIQUE IN DRUG USAGE PROCESS [None]
